FAERS Safety Report 8092309-8 (Version None)
Quarter: 2012Q1

REPORT INFORMATION
  Report Type: 
  Country: None (occurrence: None)
  Receive Date: 20120129
  Receipt Date: 20111122
  Transmission Date: 20120608
  Serious: No
  Sender: FDA-Public Use
  Company Number: US-ABBOTT-11P-163-0877094-00

PATIENT
  Sex: Female

DRUGS (3)
  1. HUMIRA [Suspect]
  2. HUMIRA [Suspect]
     Indication: PSORIASIS
     Route: 058
     Dates: start: 20111103
  3. SPRINTEC [Concomitant]
     Indication: CONTRACEPTION

REACTIONS (3)
  - SINUS CONGESTION [None]
  - NASOPHARYNGITIS [None]
  - THROAT IRRITATION [None]
